FAERS Safety Report 4886706-9 (Version None)
Quarter: 2006Q1

REPORT INFORMATION
  Report Type: 
  Country: None (occurrence: None)
  Receive Date: 20060119
  Receipt Date: 20060106
  Transmission Date: 20060701
  Serious: Yes (Life-Threatening, Hospitalization, Other)
  Sender: FDA-Public Use
  Company Number: 2006RR-01463

PATIENT
  Age: 79 Year
  Sex: Male

DRUGS (8)
  1. ETODOLAC [Suspect]
     Dosage: 600 MG M/R, QD, ORAL
     Route: 048
     Dates: start: 20051202, end: 20051213
  2. NABUMETONE [Suspect]
     Dosage: 1000 MG, BID, ORAL
     Route: 048
     Dates: start: 20050323, end: 20051202
  3. DOXAZOSIN TABLET 4MG (DOXAZOSIN) [Concomitant]
  4. ATENOLOL TABLETS BP 50MG (ATENOLOL) TABLET [Concomitant]
  5. ISMN [Concomitant]
  6. GTN-S [Concomitant]
  7. ASPIRIN [Concomitant]
  8. HYPROMELLOSE [Concomitant]

REACTIONS (1)
  - ACUTE MYOCARDIAL INFARCTION [None]
